FAERS Safety Report 15618229 (Version 2)
Quarter: 2018Q4

REPORT INFORMATION
  Report Type: Spontaneous
  Country: US (occurrence: US)
  Receive Date: 20181114
  Receipt Date: 20181119
  Transmission Date: 20190205
  Serious: Yes (Other)
  Sender: FDA-Public Use
  Company Number: US-IMPAX LABORATORIES, LLC-2018-IPXL-03734

PATIENT
  Age: 63 Year
  Sex: Female

DRUGS (4)
  1. MIRTAZAPINE ODT [Suspect]
     Active Substance: MIRTAZAPINE
     Indication: PRODUCT USE IN UNAPPROVED INDICATION
  2. MEFLOQUINE [Suspect]
     Active Substance: MEFLOQUINE
     Dosage: 250 MILLIGRAM, 1 /WEEK
     Route: 065
  3. MIRTAZAPINE ODT [Suspect]
     Active Substance: MIRTAZAPINE
     Indication: PROGRESSIVE MULTIFOCAL LEUKOENCEPHALOPATHY
     Dosage: 30 MILLIGRAM, DAILY
     Route: 065
  4. MEFLOQUINE [Suspect]
     Active Substance: MEFLOQUINE
     Indication: PROGRESSIVE MULTIFOCAL LEUKOENCEPHALOPATHY
     Dosage: 250 MILLIGRAM, DAILY
     Route: 065

REACTIONS (2)
  - Product use in unapproved indication [Unknown]
  - Progressive multifocal leukoencephalopathy [Recovered/Resolved]
